FAERS Safety Report 25128165 (Version 1)
Quarter: 2025Q1

REPORT INFORMATION
  Report Type: Report from Study
  Country: GB (occurrence: GB)
  Receive Date: 20250327
  Receipt Date: 20250327
  Transmission Date: 20250409
  Serious: Yes (Hospitalization)
  Sender: SAMSUNG BIOEPIS
  Company Number: GB-SAMSUNG BIOEPIS-SB-2025-10544

PATIENT
  Age: 57 Year
  Sex: Female

DRUGS (1)
  1. ETANERCEPT [Suspect]
     Active Substance: ETANERCEPT
     Indication: Rheumatoid arthritis
     Route: 058

REACTIONS (1)
  - Palpitations [Unknown]
